FAERS Safety Report 12420361 (Version 2)
Quarter: 2016Q2

REPORT INFORMATION
  Report Type: Spontaneous
  Country: JP (occurrence: JP)
  Receive Date: 20160531
  Receipt Date: 20160605
  Transmission Date: 20160815
  Serious: No
  Sender: FDA-Public Use
  Company Number: JP-JNJFOC-20160519782

PATIENT

DRUGS (1)
  1. DUROTEP MT [Suspect]
     Active Substance: FENTANYL
     Indication: PRODUCT USED FOR UNKNOWN INDICATION
     Route: 062

REACTIONS (2)
  - Wrong technique in product usage process [Unknown]
  - Product adhesion issue [Unknown]
